FAERS Safety Report 19756250 (Version 2)
Quarter: 2021Q3

REPORT INFORMATION
  Report Type: Spontaneous
  Country: GB (occurrence: GB)
  Receive Date: 20210827
  Receipt Date: 20210903
  Transmission Date: 20211014
  Serious: Yes (Other)
  Sender: FDA-Public Use
  Company Number: GB-TEVA-2021-GB-1945527

PATIENT
  Sex: Female

DRUGS (2)
  1. ABACAVIR AND LAMIVUDINE [Suspect]
     Active Substance: ABACAVIR SULFATE\LAMIVUDINE
     Dosage: UNK
     Route: 065
  2. RALTEGRAVIR POTASSIUM [Suspect]
     Active Substance: RALTEGRAVIR POTASSIUM
     Dosage: UNK, (OD)
     Route: 048

REACTIONS (1)
  - Helicobacter infection [Unknown]
